FAERS Safety Report 9056237 (Version 6)
Quarter: 2013Q3

REPORT INFORMATION
  Report Type: Report from Study
  Country: US (occurrence: US)
  Receive Date: 20130205
  Receipt Date: 20130923
  Transmission Date: 20140515
  Serious: Yes (Death, Hospitalization, Other)
  Sender: FDA-Public Use
  Company Number: US-ALEXION PHARMACEUTICALS INC.-A201300169

PATIENT
  Age: 64 Year
  Sex: Male
  Weight: 74.3 kg

DRUGS (17)
  1. SOLIRIS 300MG [Suspect]
     Indication: HAEMOLYTIC URAEMIC SYNDROME
     Dosage: 900 MG, SINGLE
     Route: 042
     Dates: start: 20121206
  2. SOLIRIS 300MG [Suspect]
     Indication: ANTIPHOSPHOLIPID SYNDROME
     Dosage: 600 MG, SINGLE
     Route: 042
     Dates: start: 20121212
  3. SOLIRIS 300MG [Suspect]
     Indication: OFF LABEL USE
     Dosage: 900 MG, SINGLE
     Route: 042
     Dates: start: 20121213
  4. SOLIRIS 300MG [Suspect]
     Dosage: 600 MG, SINGLE
     Route: 042
     Dates: start: 20121218
  5. SOLIRIS 300MG [Suspect]
     Dosage: 900 MG, SINGLE
     Route: 042
     Dates: start: 20121220
  6. SOLIRIS 300MG [Suspect]
     Dosage: 600 MG, QD
     Route: 042
     Dates: start: 20121224, end: 20121225
  7. SOLIRIS 300MG [Suspect]
     Dosage: 900 MG, SINGLE
     Route: 042
     Dates: start: 20121227
  8. SOLIRIS 300MG [Suspect]
     Dosage: 1200 MG, SINGLE
     Route: 042
     Dates: start: 20130103
  9. SOLIRIS 300MG [Suspect]
     Dosage: 1200 MG, SINGLE
     Route: 042
     Dates: start: 20130105
  10. SOLIRIS 300MG [Suspect]
     Dosage: 600 MG, QD
     Route: 042
     Dates: start: 20130110, end: 20130113
  11. SOLIRIS 300MG [Suspect]
     Dosage: 1200 MG, SINGLE
     Route: 042
     Dates: start: 20130117
  12. RITUXAN [Suspect]
     Dosage: 1000 MG, UNK
     Route: 042
     Dates: start: 20121126
  13. RITUXAN [Suspect]
     Dosage: 1000 MG, SINGLE
     Route: 042
     Dates: start: 20121214
  14. AMLODIPINE [Concomitant]
     Dosage: 2.5 MG, BID
  15. DILTIAZEM [Concomitant]
     Dosage: 0.15 MG, QOD
  16. MORPHINE [Concomitant]
     Dosage: 1-2 MG, Q2H, PRN
     Route: 042
  17. MOTRIN [Concomitant]
     Dosage: 40 MG, BID
     Route: 042

REACTIONS (4)
  - Antiphospholipid syndrome [Fatal]
  - Sepsis [Fatal]
  - Amputation [Unknown]
  - Hepatic failure [Unknown]
